FAERS Safety Report 15463401 (Version 1)
Quarter: 2018Q4

REPORT INFORMATION
  Report Type: Spontaneous
  Country: MX (occurrence: MX)
  Receive Date: 20181004
  Receipt Date: 20181004
  Transmission Date: 20190204
  Serious: Yes (Other)
  Sender: FDA-Public Use
  Company Number: MX-SUN PHARMACEUTICAL INDUSTRIES LTD-2018RR-185996

PATIENT
  Age: 60 Year
  Sex: Female

DRUGS (2)
  1. GEMCITABINE [Suspect]
     Active Substance: GEMCITABINE\GEMCITABINE HYDROCHLORIDE
     Indication: METASTATIC SQUAMOUS CELL CARCINOMA
     Route: 065
  2. CARBOPLATIN. [Suspect]
     Active Substance: CARBOPLATIN
     Indication: METASTATIC SQUAMOUS CELL CARCINOMA
     Route: 065

REACTIONS (2)
  - Septic shock [Unknown]
  - Febrile neutropenia [Unknown]
